FAERS Safety Report 23949087 (Version 1)
Quarter: 2024Q2

REPORT INFORMATION
  Report Type: Spontaneous
  Country: US (occurrence: US)
  Receive Date: 20240607
  Receipt Date: 20240607
  Transmission Date: 20240716
  Serious: No
  Sender: FDA-Public Use
  Company Number: US-LUPIN PHARMACEUTICALS INC.-2024-04608

PATIENT

DRUGS (1)
  1. ALBUTEROL SULFATE [Suspect]
     Active Substance: ALBUTEROL SULFATE
     Indication: Dyspnoea
     Dosage: UNK, PRN 1-2 PUFFS AS NEEDED
     Dates: start: 202402

REACTIONS (5)
  - Wrong technique in product usage process [Unknown]
  - Device malfunction [Unknown]
  - Product packaging issue [Unknown]
  - Incorrect dose administered by device [Unknown]
  - No adverse event [Unknown]
